FAERS Safety Report 4362321-0 (Version None)
Quarter: 2004Q2

REPORT INFORMATION
  Report Type: 
  Country: None (occurrence: None)
  Receive Date: 20040520
  Receipt Date: 20040520
  Transmission Date: 20050107
  Serious: Yes (Hospitalization)
  Sender: FDA-Public Use
  Company Number: None

PATIENT
  Sex: Male
  Weight: 53.978 kg

DRUGS (1)
  1. WARFARIN SODIUM [Suspect]
     Dosage: 6 MG QD  EXCEPT 2 DAYS/WEEKS

REACTIONS (3)
  - ARTHRALGIA [None]
  - CONTUSION [None]
  - EPISTAXIS [None]
